FAERS Safety Report 19647100 (Version 1)
Quarter: 2021Q3

REPORT INFORMATION
  Report Type: Report from Study
  Country: US (occurrence: US)
  Receive Date: 20210802
  Receipt Date: 20210802
  Transmission Date: 20211014
  Serious: Yes (Hospitalization)
  Sender: FDA-Public Use
  Company Number: US-MYLANLABS-2021M1046799

PATIENT

DRUGS (1)
  1. GLIBENCLAMIDE [Suspect]
     Active Substance: GLYBURIDE
     Indication: OEDEMA
     Dosage: 2.5 MILLIGRAM, BID

REACTIONS (2)
  - Hypoglycaemia [Unknown]
  - Off label use [Unknown]
